FAERS Safety Report 4984768-1 (Version None)
Quarter: 2006Q2

REPORT INFORMATION
  Report Type: 
  Country: None (occurrence: None)
  Receive Date: 20060427
  Receipt Date: 20060417
  Transmission Date: 20061013
  Serious: Yes (Other)
  Sender: FDA-Public Use
  Company Number: JP-BRISTOL-MYERS SQUIBB COMPANY-13351994

PATIENT
  Age: 70 Year
  Sex: Male

DRUGS (4)
  1. TAXOL [Suspect]
     Indication: LUNG NEOPLASM MALIGNANT
     Route: 042
     Dates: start: 20060331, end: 20060331
  2. DECADRON [Concomitant]
     Route: 042
     Dates: start: 20060331, end: 20060331
  3. GASTER [Concomitant]
     Route: 042
     Dates: start: 20060331, end: 20060331
  4. POLARAMINE [Concomitant]
     Route: 048
     Dates: start: 20060331, end: 20060331

REACTIONS (2)
  - BUNDLE BRANCH BLOCK [None]
  - HYPERSENSITIVITY [None]
